FAERS Safety Report 9372675 (Version 1)
Quarter: 2013Q2

REPORT INFORMATION
  Report Type: Report from Study
  Country: US (occurrence: US)
  Receive Date: 20130627
  Receipt Date: 20130627
  Transmission Date: 20140414
  Serious: Yes (Life-Threatening, Other)
  Sender: FDA-Public Use
  Company Number: US-MYLANLABS-2013S1005206

PATIENT
  Age: 51 Year
  Sex: Female
  Weight: 72.58 kg

DRUGS (21)
  1. CLOZAPINE TABLETS [Suspect]
     Indication: SCHIZOAFFECTIVE DISORDER
     Route: 048
     Dates: end: 20130302
  2. CLOZAPINE TABLETS [Suspect]
     Indication: PSYCHOTIC DISORDER
     Route: 048
     Dates: end: 20130302
  3. CLOZAPINE TABLETS [Suspect]
     Indication: SCHIZOAFFECTIVE DISORDER
     Route: 048
     Dates: start: 20130302, end: 20130303
  4. CLOZAPINE TABLETS [Suspect]
     Indication: PSYCHOTIC DISORDER
     Route: 048
     Dates: start: 20130302, end: 20130303
  5. CLOZAPINE TABLETS [Suspect]
     Indication: SCHIZOAFFECTIVE DISORDER
     Route: 048
     Dates: start: 20130303, end: 20130304
  6. CLOZAPINE TABLETS [Suspect]
     Indication: PSYCHOTIC DISORDER
     Route: 048
     Dates: start: 20130303, end: 20130304
  7. ASPIRIN [Concomitant]
     Route: 048
  8. OMEPRAZOLE [Concomitant]
     Route: 048
  9. LORATADINE [Concomitant]
     Route: 048
  10. HCTZ [Concomitant]
     Route: 048
  11. ALDACTONE [Concomitant]
     Route: 048
  12. CELEBREX [Concomitant]
     Route: 048
  13. METFORMIN [Concomitant]
     Route: 048
  14. LIPITOR [Concomitant]
     Route: 048
  15. DILTIAZEM [Concomitant]
     Route: 048
  16. SINGULAR [Concomitant]
     Route: 048
  17. TRAZODONE [Concomitant]
     Route: 048
  18. DEPAKOTE [Concomitant]
     Route: 048
  19. ADVAIR [Concomitant]
     Dosage: 250MG/50MG
     Route: 055
  20. SPIRIVA [Concomitant]
     Dosage: 250MG/50MG
     Route: 048
  21. MULTIVITAMIN [Concomitant]
     Route: 048

REACTIONS (3)
  - Agranulocytosis [Recovered/Resolved]
  - Leukopenia [Recovered/Resolved]
  - Granulocytopenia [Not Recovered/Not Resolved]
